FAERS Safety Report 6568930-2 (Version None)
Quarter: 2010Q1

REPORT INFORMATION
  Report Type: 
  Country: None (occurrence: None)
  Receive Date: 20100201
  Receipt Date: 20100201
  Transmission Date: 20100710
  Serious: Yes (Hospitalization, Disabling, Congenital Anomaly)
  Sender: FDA-Public Use
  Company Number: None

PATIENT
  Age: 42 Year
  Sex: Male
  Weight: 97.5234 kg

DRUGS (1)
  1. TRAZODONE HCL [Suspect]
     Indication: SLEEP DISORDER THERAPY
     Dosage: 1 PILL AT BEDTIME EVERY NITE.
     Dates: start: 20090901, end: 20090910

REACTIONS (5)
  - IMPAIRED WORK ABILITY [None]
  - MENTAL DISORDER [None]
  - PAIN [None]
  - PAINFUL ERECTION [None]
  - PRIAPISM [None]
